FAERS Safety Report 8623905-4 (Version None)
Quarter: 2012Q3

REPORT INFORMATION
  Report Type: 
  Country: None (occurrence: None)
  Receive Date: 20120824
  Receipt Date: 20120824
  Transmission Date: 20120928
  Serious: No
  Sender: FDA-Public Use
  Company Number: None

PATIENT
  Age: 66 Year
  Sex: Female
  Weight: 60.782 kg

DRUGS (1)
  1. MIDAZOLAM HYDROCHLORIDE [Suspect]
     Indication: SEDATION
     Dosage: 2MG, IV, IRREG INTERVAL
     Route: 042

REACTIONS (2)
  - LETHARGY [None]
  - DRUG INTERACTION [None]
